FAERS Safety Report 9093276 (Version 2)
Quarter: 2013Q1

REPORT INFORMATION
  Report Type: Report from Study
  Country: BE (occurrence: BE)
  Receive Date: 20130125
  Receipt Date: 20130125
  Transmission Date: 20140127
  Serious: Yes (Life-Threatening)
  Sender: FDA-Public Use
  Company Number: BE-ROCHE-1172593

PATIENT
  Age: 68 Year
  Sex: Female
  Weight: 75 kg

DRUGS (19)
  1. TRASTUZUMAB [Suspect]
     Indication: BREAST CANCER
     Dosage: LOADING DOSE AS PER PROTOCOL
     Route: 042
     Dates: start: 20121105
  2. TRASTUZUMAB [Suspect]
     Dosage: DATE OF LAST DOSE PRIOR TO SAE: 26/NOV/2012
     Route: 042
  3. PACLITAXEL [Suspect]
     Indication: BREAST CANCER
     Dosage: LAST DOSE PRIOR TO SAE: 03/DEC/2012
     Route: 042
     Dates: start: 20121105
  4. PACLITAXEL [Suspect]
     Dosage: DOSE REDUCED IN RESPONSE TO SAE.
     Route: 042
     Dates: start: 20121112
  5. FLUOROURACIL [Suspect]
     Indication: BREAST CANCER
     Dosage: 500-6000 MG /M2. DOSE, ROUTE AND FREQUENCY AS PER PROTOCOL.
     Route: 042
     Dates: start: 20120813, end: 20121015
  6. EPIRUBICIN [Suspect]
     Indication: BREAST CANCER
     Dosage: 90-120 MG/M2. DOSE, ROUTE AND FREQUENCY AS PER PROTOCOL.
     Route: 042
     Dates: start: 20120813, end: 20121015
  7. CYCLOPHOSPHAMIDE [Suspect]
     Indication: BREAST CANCER
     Dosage: 500-600 MG/M2. DOSE, ROUTE AND FREQUENCY AS PER PROTOCOL.
     Route: 042
     Dates: start: 20120813, end: 20121015
  8. OMEGA 3 [Concomitant]
     Route: 065
     Dates: start: 20120827, end: 20121228
  9. RANITIDINE [Concomitant]
     Route: 065
     Dates: start: 20120904, end: 20121228
  10. ISOTEN [Concomitant]
     Route: 065
     Dates: start: 20121215, end: 20121228
  11. FRAXODI [Concomitant]
     Route: 065
     Dates: start: 20121031
  12. MOTILIUM (BELGIUM) [Concomitant]
     Route: 065
     Dates: start: 20121105, end: 20121228
  13. LEVOTHYROXINE [Concomitant]
     Route: 065
     Dates: start: 1996
  14. NOVIAL [Concomitant]
     Route: 065
     Dates: start: 20120903, end: 20121228
  15. D-CURE [Concomitant]
     Route: 065
     Dates: start: 20121030
  16. COVERSYL [Concomitant]
     Route: 065
     Dates: start: 20121215, end: 20121226
  17. LASIX [Concomitant]
     Route: 065
     Dates: start: 20121215, end: 20121228
  18. ZYRTEC [Concomitant]
     Route: 065
     Dates: start: 20121227, end: 20121228
  19. PERTUZUMAB [Suspect]
     Indication: BREAST CANCER
     Dosage: DATE OF LAST DOSE PRIOR TO SAE- 26/NOV/2012
     Route: 042
     Dates: start: 20121105

REACTIONS (2)
  - Pneumonia [Recovered/Resolved]
  - Cardiac failure [Recovered/Resolved]
